FAERS Safety Report 7459011-4 (Version None)
Quarter: 2011Q2

REPORT INFORMATION
  Report Type: 
  Country: None (occurrence: None)
  Receive Date: 20110505
  Receipt Date: 20110425
  Transmission Date: 20111010
  Serious: Yes (Hospitalization)
  Sender: FDA-Public Use
  Company Number: US-BIOGENIDEC-2011BI012755

PATIENT
  Age: 61 Year
  Sex: Male
  Weight: 102 kg

DRUGS (8)
  1. VICODIN [Concomitant]
     Indication: PAIN
     Route: 048
  2. TYSABRI [Suspect]
     Indication: MULTIPLE SCLEROSIS
     Route: 042
     Dates: start: 20100809
  3. CRESTOR [Concomitant]
     Indication: HYPERLIPIDAEMIA
     Route: 048
  4. OXYBUTYNIN [Concomitant]
     Indication: BLADDER DISORDER
     Route: 048
  5. NYSTATIN [Concomitant]
     Route: 048
  6. ROBAXIN [Concomitant]
     Route: 048
  7. MAXZIDE [Concomitant]
     Route: 048
  8. TENORETIC [Concomitant]
     Route: 048

REACTIONS (1)
  - CARDIAC FAILURE CONGESTIVE [None]
